FAERS Safety Report 6401252-9 (Version None)
Quarter: 2009Q4

REPORT INFORMATION
  Report Type: 
  Country: None (occurrence: None)
  Receive Date: 20091009
  Receipt Date: 20091009
  Transmission Date: 20100525
  Serious: No
  Sender: FDA-Public Use
  Company Number: None

PATIENT
  Sex: Female
  Weight: 63.5036 kg

DRUGS (2)
  1. HUMIRA [Suspect]
     Indication: PSORIASIS
     Dosage: 1 WEEK
     Dates: start: 20040401, end: 20040814
  2. HUMIRA [Suspect]
     Indication: PSORIATIC ARTHROPATHY
     Dosage: 1 WEEK
     Dates: start: 20040401, end: 20040814

REACTIONS (3)
  - CONDITION AGGRAVATED [None]
  - LUPUS-LIKE SYNDROME [None]
  - PSORIATIC ARTHROPATHY [None]
